FAERS Safety Report 10051550 (Version 1)
Quarter: 2014Q2

REPORT INFORMATION
  Report Type: Report from Study
  Country: US (occurrence: US)
  Receive Date: 20140401
  Receipt Date: 20140401
  Transmission Date: 20141212
  Serious: No
  Sender: FDA-Public Use
  Company Number: US-ALEXION-A201400908

PATIENT
  Sex: 0

DRUGS (5)
  1. SOLIRIS [Suspect]
     Indication: PAROXYSMAL NOCTURNAL HAEMOGLOBINURIA
     Dosage: 900 MG, Q2W
     Route: 042
     Dates: start: 20110922
  2. ACYCLOVIR                          /00587301/ [Concomitant]
     Dosage: 200 MG, TID
     Dates: start: 20110822, end: 20131012
  3. ZOLOFT [Concomitant]
     Dosage: 50 MG, QD
     Dates: start: 20110822, end: 20131210
  4. FOLIC ACID [Concomitant]
     Dosage: 1 MG, QD
     Dates: start: 20110822
  5. VORICONAZOLE [Concomitant]
     Dosage: 200 MG, BID
     Dates: start: 20110830, end: 20131210

REACTIONS (3)
  - Platelet count decreased [Recovered/Resolved]
  - Haemoglobin decreased [Recovered/Resolved]
  - Nasopharyngitis [Recovered/Resolved]
